FAERS Safety Report 9671181 (Version 2)
Quarter: 2014Q2

REPORT INFORMATION
  Report Type: Report from Study
  Country: JP (occurrence: JP)
  Receive Date: 20131106
  Receipt Date: 20140429
  Transmission Date: 20141212
  Serious: Yes (Death, Other)
  Sender: FDA-Public Use
  Company Number: JP-ASTELLAS-2013US011536

PATIENT
  Sex: 0

DRUGS (1)
  1. ERLOTINIB [Suspect]
     Indication: NON-SMALL CELL LUNG CANCER
     Dosage: 150 MG/BODY, ONCE DAILY
     Route: 065

REACTIONS (4)
  - Death [Fatal]
  - Septic shock [Unknown]
  - Colitis [Unknown]
  - Diarrhoea [Unknown]
